FAERS Safety Report 9315751 (Version 1)
Quarter: 2013Q2

REPORT INFORMATION
  Report Type: Spontaneous
  Country: GB (occurrence: GB)
  Receive Date: 20130529
  Receipt Date: 20130529
  Transmission Date: 20140414
  Serious: Yes (Other)
  Sender: FDA-Public Use
  Company Number: CHPA2013GB008789

PATIENT
  Sex: Female

DRUGS (1)
  1. OTRIVINE ADULT MEASURED DOSE SINUSITIS SPRAY [Suspect]
     Dosage: UNK, UNK
     Route: 045

REACTIONS (2)
  - Drug dependence [Unknown]
  - Therapeutic response decreased [Unknown]
